FAERS Safety Report 6014793-3 (Version None)
Quarter: 2008Q4

REPORT INFORMATION
  Report Type: 
  Country: None (occurrence: None)
  Receive Date: 20081219
  Receipt Date: 20081215
  Transmission Date: 20090506
  Serious: Yes (Hospitalization)
  Sender: FDA-Public Use
  Company Number: PHHY2008DE32023

PATIENT
  Age: 72 Year
  Sex: Female
  Weight: 90 kg

DRUGS (4)
  1. DICLOFENAC SODIUM [Suspect]
     Indication: MUSCULOSKELETAL DISCOMFORT
     Dosage: 150 MG, QD
     Route: 048
     Dates: start: 20081128, end: 20081206
  2. GLYBURIDE [Concomitant]
     Indication: DIABETES MELLITUS
     Dosage: 7 MG
     Route: 048
     Dates: start: 20081206
  3. NEXIUM [Concomitant]
     Indication: GASTRITIS
     Dosage: UNK
  4. RAMIPRIL [Concomitant]
     Dosage: UNK

REACTIONS (3)
  - DIALYSIS [None]
  - LACTIC ACIDOSIS [None]
  - LOSS OF CONSCIOUSNESS [None]
